FAERS Safety Report 7397435-4 (Version None)
Quarter: 2011Q2

REPORT INFORMATION
  Report Type: 
  Country: None (occurrence: None)
  Receive Date: 20110406
  Receipt Date: 20110323
  Transmission Date: 20111010
  Serious: Yes (Other)
  Sender: FDA-Public Use
  Company Number: PHEH2009US00593

PATIENT
  Sex: Male

DRUGS (17)
  1. ZOMETA [Suspect]
     Indication: PROSTATE CANCER METASTATIC
     Dosage: 4 MG MONTHLY
     Route: 042
     Dates: start: 20040101, end: 20041201
  2. PERCOCET [Concomitant]
  3. AUGMENTIN [Suspect]
  4. DEXAMETHASONE [Concomitant]
  5. AMOXIL ^AYERST LAB^ [Concomitant]
     Dosage: UNK
  6. CYMBALTA [Concomitant]
  7. LUPRON [Concomitant]
  8. ZOLOFT [Concomitant]
  9. MEGACE [Concomitant]
  10. ZANTAC [Concomitant]
  11. MEGESTROL ACETATE [Concomitant]
  12. PROVENTIL [Concomitant]
  13. CASODEX [Concomitant]
  14. OXYCONTIN [Concomitant]
  15. DETROL [Concomitant]
  16. PRILOSEC [Concomitant]
  17. LEVAQUIN [Concomitant]

REACTIONS (38)
  - SPEECH DISORDER [None]
  - BONE DISORDER [None]
  - SINUS CONGESTION [None]
  - COLONIC POLYP [None]
  - CHILLS [None]
  - ABDOMINAL PAIN UPPER [None]
  - RECTAL POLYP [None]
  - DRUG ABUSE [None]
  - EYE MOVEMENT DISORDER [None]
  - ANXIETY [None]
  - VOMITING [None]
  - DIVERTICULITIS [None]
  - PYREXIA [None]
  - HIATUS HERNIA [None]
  - DIARRHOEA [None]
  - CHOLECYSTITIS CHRONIC [None]
  - CHOLELITHIASIS [None]
  - BONE LESION [None]
  - MALAISE [None]
  - GASTROOESOPHAGEAL REFLUX DISEASE [None]
  - ACQUIRED OESOPHAGEAL WEB [None]
  - CONVULSION [None]
  - NAUSEA [None]
  - HYPOKALAEMIA [None]
  - PAIN IN JAW [None]
  - PERIODONTAL DISEASE [None]
  - PROSTATIC SPECIFIC ANTIGEN INCREASED [None]
  - SINUSITIS [None]
  - COLON ADENOMA [None]
  - RHINITIS ALLERGIC [None]
  - FAT NECROSIS [None]
  - OSTEOSCLEROSIS [None]
  - TOOTH DISORDER [None]
  - MAJOR DEPRESSION [None]
  - INTERVERTEBRAL DISC PROTRUSION [None]
  - BACK PAIN [None]
  - LOSS OF CONSCIOUSNESS [None]
  - DIZZINESS [None]
